FAERS Safety Report 7270730-5 (Version None)
Quarter: 2011Q1

REPORT INFORMATION
  Report Type: 
  Country: None (occurrence: None)
  Receive Date: 20110202
  Receipt Date: 20101207
  Transmission Date: 20110831
  Serious: Yes (Other)
  Sender: FDA-Public Use
  Company Number: B0697451A

PATIENT
  Age: 4 Year
  Sex: Male

DRUGS (7)
  1. CLOBAZAM [Concomitant]
     Dosage: 2TAB PER DAY
     Route: 065
  2. PREDNISOLONE [Concomitant]
     Route: 065
  3. VALPROATE SODIUM [Suspect]
     Dosage: 2.5ML PER DAY
     Route: 065
  4. KEPPRA [Suspect]
     Indication: EPILEPSY
     Route: 065
     Dates: start: 20090701
  5. IMMUNE GLOBULIN NOS [Concomitant]
     Route: 065
  6. CLOBAZAM [Concomitant]
     Route: 065
     Dates: start: 20090101
  7. LAMOTRIGINE [Suspect]
     Route: 065

REACTIONS (14)
  - OBSESSIVE THOUGHTS [None]
  - ABNORMAL BEHAVIOUR [None]
  - TREMOR [None]
  - POSTURE ABNORMAL [None]
  - DROOLING [None]
  - EXCESSIVE EYE BLINKING [None]
  - GENERAL SYMPTOM [None]
  - HEMIPLEGIA [None]
  - AGGRESSION [None]
  - WALKING DISABILITY [None]
  - DYSKINESIA [None]
  - BENIGN ROLANDIC EPILEPSY [None]
  - BALANCE DISORDER [None]
  - ATAXIA [None]
